FAERS Safety Report 9214962 (Version 3)
Quarter: 2013Q2

REPORT INFORMATION
  Report Type: Spontaneous
  Country: US (occurrence: US)
  Receive Date: 20130405
  Receipt Date: 20130619
  Transmission Date: 20140414
  Serious: Yes (Other)
  Sender: FDA-Public Use
  Company Number: CHPA2013US004652

PATIENT
  Sex: Female

DRUGS (4)
  1. VOLTAREN GEL [Suspect]
     Indication: OSTEOARTHRITIS
     Dosage: UNK, UNK
     Route: 061
  2. VOLTAREN GEL [Suspect]
     Indication: RHEUMATOID ARTHRITIS
  3. VOLTAREN GEL [Suspect]
     Indication: PAIN IN EXTREMITY
  4. ANTIHYPERTENSIVE DRUGS [Suspect]

REACTIONS (5)
  - Hypertension [Recovered/Resolved]
  - Gastroenteritis viral [Recovered/Resolved]
  - Vomiting [Recovered/Resolved]
  - Off label use [Unknown]
  - Therapeutic response unexpected [Unknown]
